FAERS Safety Report 23648471 (Version 4)
Quarter: 2024Q3

REPORT INFORMATION
  Report Type: Spontaneous
  Country: US (occurrence: US)
  Receive Date: 20240319
  Receipt Date: 20240828
  Transmission Date: 20241016
  Serious: No
  Sender: PFIZER
  Company Number: US-PFIZER INC-202400052966

PATIENT
  Age: 10 Year
  Sex: Male
  Weight: 23.59 kg

DRUGS (1)
  1. GENOTROPIN [Suspect]
     Active Substance: SOMATROPIN
     Indication: Growth hormone deficiency
     Dosage: 1 MG, DAILY
     Dates: start: 20230301

REACTIONS (2)
  - Drug dose omission by device [Unknown]
  - Device mechanical issue [Unknown]
